FAERS Safety Report 17282334 (Version 1)
Quarter: 2020Q1

REPORT INFORMATION
  Report Type: Spontaneous
  Country: US (occurrence: US)
  Receive Date: 20200116
  Receipt Date: 20200116
  Transmission Date: 20200409
  Serious: Yes (Hospitalization)
  Sender: FDA-Public Use
  Company Number: None

PATIENT
  Age: 36 Year
  Sex: Female
  Weight: 67.5 kg

DRUGS (2)
  1. EMGALITY [Suspect]
     Active Substance: GALCANEZUMAB-GNLM
     Indication: HEADACHE
     Dosage: ?          QUANTITY:1 INJECTION(S);OTHER FREQUENCY:ONE MONTHLY;?
     Route: 058
     Dates: start: 20190824, end: 20190825
  2. ASPIRIN. [Concomitant]
     Active Substance: ASPIRIN

REACTIONS (3)
  - Hypotension [None]
  - Palpitations [None]
  - Dizziness [None]

NARRATIVE: CASE EVENT DATE: 20191122
